FAERS Safety Report 4890111-9 (Version None)
Quarter: 2005Q4

REPORT INFORMATION
  Report Type: 
  Country: None (occurrence: None)
  Receive Date: 20051220
  Receipt Date: 20050914
  Transmission Date: 20060501
  Serious: Yes (Hospitalization, Other)
  Sender: FDA-Public Use
  Company Number: US150268

PATIENT
  Age: 53 Year
  Sex: Male

DRUGS (1)
  1. ENBREL [Suspect]
     Indication: ANKYLOSING SPONDYLITIS
     Dosage: 25 MG, 1 IN 1 WEEKS, SC
     Route: 058
     Dates: start: 20050501, end: 20050614

REACTIONS (2)
  - PROSTATE CANCER [None]
  - THROMBOSIS [None]
